FAERS Safety Report 18131876 (Version 2)
Quarter: 2020Q3

REPORT INFORMATION
  Report Type: Report from Study
  Country: None (occurrence: US)
  Receive Date: 20200810
  Receipt Date: 20200825
  Transmission Date: 20201103
  Serious: Yes (Other)
  Sender: FDA-Public Use
  Company Number: US-ABBVIE-20K-163-3351798-00

PATIENT
  Sex: Female

DRUGS (2)
  1. RINVOQ [Suspect]
     Active Substance: UPADACITINIB
     Route: 048
  2. RINVOQ [Suspect]
     Active Substance: UPADACITINIB
     Indication: RHEUMATOID ARTHRITIS
     Route: 048
     Dates: start: 20191024

REACTIONS (18)
  - Fatigue [Unknown]
  - Rheumatoid arthritis [Unknown]
  - Weight increased [Unknown]
  - Palpitations [Unknown]
  - Gastrooesophageal reflux disease [Unknown]
  - Back pain [Unknown]
  - Chest discomfort [Unknown]
  - Dyspepsia [Unknown]
  - Cardiac disorder [Recovering/Resolving]
  - Alopecia [Not Recovered/Not Resolved]
  - Urinary tract infection [Unknown]
  - Blood glucose decreased [Unknown]
  - Memory impairment [Unknown]
  - Nodule [Unknown]
  - Blood iron decreased [Unknown]
  - Diarrhoea [Not Recovered/Not Resolved]
  - Pain [Unknown]
  - Extrasystoles [Unknown]

NARRATIVE: CASE EVENT DATE: 2020
